FAERS Safety Report 12177217 (Version 4)
Quarter: 2016Q1

REPORT INFORMATION
  Report Type: Report from Study
  Country: BR (occurrence: BR)
  Receive Date: 20160314
  Receipt Date: 20160324
  Transmission Date: 20160526
  Serious: Yes (Death, Other)
  Sender: FDA-Public Use
  Company Number: PHHY2014BR047159

PATIENT
  Age: 71 Year
  Sex: Male
  Weight: 75 kg

DRUGS (24)
  1. LIPITOR [Suspect]
     Active Substance: ATORVASTATIN CALCIUM
     Indication: BLOOD CHOLESTEROL ABNORMAL
     Dosage: 1 DF, QHS (AT NIGHT)
     Route: 048
     Dates: start: 2009
  2. SOMALGIN [Suspect]
     Active Substance: ASPIRIN\DIHYDROXYALUMINUM AMINOACETATE ANHYDROUS\MAGNESIUM CARBONATE
     Indication: ANTICOAGULANT THERAPY
     Dosage: 1 DF, QD
     Route: 048
     Dates: start: 2009
  3. CENTRUM [Suspect]
     Active Substance: VITAMINS
     Indication: VITAMIN SUPPLEMENTATION
     Dosage: 1 DF, QD
     Route: 048
  4. SANDOSTATIN LAR DEPOT [Suspect]
     Active Substance: OCTREOTIDE ACETATE
     Indication: BRAIN NEOPLASM MALIGNANT
     Dosage: 120 MG, EVERY 21 OR 25 DAYS
     Route: 030
  5. FINASTERIDE. [Suspect]
     Active Substance: FINASTERIDE
     Indication: PROSTATIC DISORDER
     Dosage: 1 DF, QD
     Route: 048
     Dates: start: 2011
  6. GLIFAGE [Suspect]
     Active Substance: METFORMIN HYDROCHLORIDE
     Indication: GLUCOSE TOLERANCE IMPAIRED
     Dosage: 1 DF, QD
     Route: 048
  7. SANDOSTATIN LAR DEPOT [Suspect]
     Active Substance: OCTREOTIDE ACETATE
     Indication: NEUROENDOCRINE TUMOUR
     Dosage: 120 MG, QMO/EVERY 28 DAYS
     Route: 030
     Dates: start: 2013
  8. CLOPIDOGREL [Suspect]
     Active Substance: CLOPIDOGREL BISULFATE
     Indication: CARDIOVASCULAR INSUFFICIENCY
     Dosage: 75 MG, QD
     Route: 048
     Dates: start: 2009
  9. NAPRIX [Suspect]
     Active Substance: RAMIPRIL
     Indication: CARDIAC DISORDER
  10. VITAMIN B12 [Concomitant]
     Active Substance: CYANOCOBALAMIN
     Indication: RHEUMATIC DISORDER
     Dosage: 1 DF, QD
     Route: 048
  11. GLIFAGE [Suspect]
     Active Substance: METFORMIN HYDROCHLORIDE
     Indication: DIABETES MELLITUS
  12. CHELATED ZINC//ZINC [Concomitant]
     Indication: RHEUMATIC DISORDER
     Dosage: 1 DF, QD
     Route: 048
  13. SANDOSTATIN LAR DEPOT [Suspect]
     Active Substance: OCTREOTIDE ACETATE
     Indication: NEOPLASM MALIGNANT
     Dosage: 30 MG, QMO (1 DF EVERY 28 DAYS)
     Route: 030
     Dates: start: 201305
  14. SANDOSTATIN LAR DEPOT [Suspect]
     Active Substance: OCTREOTIDE ACETATE
     Indication: POLYP
     Dosage: 90 MG, UNK
     Route: 030
  15. NAPRIX [Suspect]
     Active Substance: RAMIPRIL
     Indication: COAGULOPATHY
     Dosage: 1 DF, QD
     Route: 048
     Dates: start: 2009
  16. OSTEOSYL [Suspect]
     Active Substance: IBANDRONATE SODIUM
     Indication: RHEUMATIC DISORDER
     Dosage: 2 DF, QD
     Route: 048
  17. DAONIL [Concomitant]
     Active Substance: GLYBURIDE
     Indication: DIABETES MELLITUS
     Dosage: 1 DF, DAILY
     Route: 048
     Dates: start: 2013
  18. METFORMIN [Suspect]
     Active Substance: METFORMIN HYDROCHLORIDE
     Indication: PRODUCT USED FOR UNKNOWN INDICATION
     Route: 048
  19. COLLAGEN [Concomitant]
     Active Substance: COLLAGEN
     Indication: PRODUCT USED FOR UNKNOWN INDICATION
     Route: 048
  20. UC II [Concomitant]
     Indication: PRODUCT USED FOR UNKNOWN INDICATION
     Route: 048
  21. AFINITOR [Suspect]
     Active Substance: EVEROLIMUS
     Indication: PRODUCT USED FOR UNKNOWN INDICATION
     Dosage: 10 MG, UNK
     Route: 048
  22. SOMATULINA LP [Suspect]
     Active Substance: LANREOTIDE ACETATE
     Indication: PRODUCT USED FOR UNKNOWN INDICATION
     Route: 065
  23. SELENIUM [Concomitant]
     Active Substance: SELENIUM
     Indication: RHEUMATIC DISORDER
     Dosage: 1 DF, QD
     Route: 048
  24. AAS [Concomitant]
     Active Substance: ASPIRIN
     Indication: CARDIAC DISORDER
     Dosage: 1 DF, QD
     Route: 065
     Dates: start: 2009

REACTIONS (22)
  - Pain in extremity [Unknown]
  - Diarrhoea [Recovering/Resolving]
  - Product use issue [Unknown]
  - Blood glucose increased [Not Recovered/Not Resolved]
  - Injection site induration [Recovered/Resolved]
  - Inappropriate schedule of drug administration [Unknown]
  - Vomiting [Unknown]
  - Hepatic pain [Unknown]
  - Faeces discoloured [Not Recovered/Not Resolved]
  - Gastrointestinal pain [Recovered/Resolved]
  - Death [Fatal]
  - Injection site pain [Recovered/Resolved]
  - Flatulence [Recovering/Resolving]
  - Multiple organ dysfunction syndrome [Unknown]
  - Eating disorder [Unknown]
  - Weight decreased [Unknown]
  - Tenderness [Unknown]
  - Food intolerance [Unknown]
  - Retching [Unknown]
  - Malaise [Unknown]
  - Injection site swelling [Recovered/Resolved]
  - Body height decreased [Not Recovered/Not Resolved]

NARRATIVE: CASE EVENT DATE: 2013
